FAERS Safety Report 9648834 (Version 1)
Quarter: 2013Q4

REPORT INFORMATION
  Report Type: Spontaneous
  Country: US (occurrence: None)
  Receive Date: 20131025
  Receipt Date: 20131025
  Transmission Date: 20140711
  Serious: No
  Sender: FDA-Public Use
  Company Number: None

PATIENT
  Sex: 0

DRUGS (7)
  1. KADCYLA [Suspect]
     Indication: BREAST CANCER METASTATIC
     Dates: start: 20090819, end: 20130823
  2. BUTALBITAL-ACETAMINOPHEN [Concomitant]
  3. LACOSAMIDE [Concomitant]
  4. NAPROXEN [Concomitant]
  5. OXYCODONE [Concomitant]
  6. ZOLEDRONIC ACID [Concomitant]
  7. DEMECLOCLYCINE (DECLOMYCIN) [Concomitant]

REACTIONS (2)
  - Convulsion [None]
  - Cerebral haemorrhage [None]
